FAERS Safety Report 7816019-4 (Version None)
Quarter: 2011Q4

REPORT INFORMATION
  Report Type: 
  Country: None (occurrence: None)
  Receive Date: 20111014
  Receipt Date: 20111010
  Transmission Date: 20120403
  Serious: Yes (Other)
  Sender: FDA-Public Use
  Company Number: FR-B.I. PHARMACEUTICALS,INC./RIDGEFIELD-2011-FF-00945FF

PATIENT
  Sex: Male

DRUGS (6)
  1. PRAMIPEXOLE DIHYDROCHLORIDE [Suspect]
     Indication: PARKINSON'S DISEASE
     Dosage: 2.8 MG
     Route: 048
  2. SIMVASTATIN [Concomitant]
     Dosage: 10 MG
     Route: 048
  3. VERAPAMIL [Concomitant]
     Dosage: 240 MG
     Route: 048
  4. ASPIRIN [Concomitant]
     Dosage: 75 MG
     Route: 048
  5. SINEMET [Suspect]
     Indication: PARKINSON'S DISEASE
     Dosage: 100/10MG X2 DAILY
     Route: 048
  6. RITALIN [Suspect]
     Indication: PARKINSON'S DISEASE
     Dosage: 60 MG
     Route: 048
     Dates: start: 20110330, end: 20110701

REACTIONS (2)
  - HYPERSEXUALITY [None]
  - IMPULSE-CONTROL DISORDER [None]
